FAERS Safety Report 7668096-1 (Version None)
Quarter: 2011Q3

REPORT INFORMATION
  Report Type: 
  Country: None (occurrence: None)
  Receive Date: 20110808
  Receipt Date: 20110726
  Transmission Date: 20111222
  Serious: No
  Sender: FDA-Public Use
  Company Number: CN-JNJFOC-20110712361

PATIENT
  Age: 15 Year
  Sex: Female
  Weight: 35 kg

DRUGS (2)
  1. CARBAMAZEPINE [Suspect]
     Indication: EPILEPSY
     Route: 048
     Dates: start: 20110719
  2. TOPAMAX [Suspect]
     Indication: EPILEPSY
     Route: 048
     Dates: start: 20110719, end: 20110724

REACTIONS (3)
  - DIZZINESS [None]
  - GAIT DISTURBANCE [None]
  - VISION BLURRED [None]
